FAERS Safety Report 10684963 (Version 3)
Quarter: 2015Q1

REPORT INFORMATION
  Report Type: Spontaneous
  Country: CZ (occurrence: CZ)
  Receive Date: 20141231
  Receipt Date: 20150130
  Transmission Date: 20150720
  Serious: Yes (Death)
  Sender: FDA-Public Use
  Company Number: CZ-SA-2014SA177417

PATIENT
  Age: 72 Year
  Sex: Male
  Weight: 84 kg

DRUGS (17)
  1. RIVOTRIL [Concomitant]
     Active Substance: CLONAZEPAM
     Dosage: 0-0-1
  2. CONTROLOC [Concomitant]
     Active Substance: PANTOPRAZOLE SODIUM
     Dosage: 0-0-01
  3. GODASAL [Concomitant]
     Dosage: 0-1-0
  4. LANTUS SOLOSTAR [Concomitant]
     Active Substance: INSULIN GLARGINE
     Route: 058
  5. ANOPYRIN [Concomitant]
     Active Substance: ASPIRIN
     Dosage: 1-0-0
  6. VESSEL DUE F [Concomitant]
     Active Substance: SULODEXIDE
     Dosage: 1-0-1
  7. TEBOKAN [Concomitant]
     Dosage: 1-0-0
  8. LANTUS [Suspect]
     Active Substance: INSULIN GLARGINE
     Indication: TYPE 2 DIABETES MELLITUS
     Route: 065
  9. FURON [Concomitant]
     Active Substance: FUROSEMIDE
     Dosage: 1/2-0-0
  10. LEVEMIR [Concomitant]
     Active Substance: INSULIN DETEMIR
     Dosage: 0-0-0-4IU
  11. NOVORAPID [Concomitant]
     Active Substance: INSULIN ASPART
  12. SOLOSTAR [Concomitant]
     Active Substance: DEVICE
     Route: 058
  13. CLOPIDOGREL [Concomitant]
     Active Substance: CLOPIDOGREL BISULFATE
     Dosage: 1-0-0
  14. RIVOTRIL [Concomitant]
     Active Substance: CLONAZEPAM
     Dosage: 1-0-1
  15. BETALOC ZOK [Concomitant]
     Active Substance: METOPROLOL SUCCINATE
     Dosage: 25 MG?1/2-0-0
  16. KCL [Concomitant]
     Active Substance: POTASSIUM CHLORIDE
     Dosage: 1-0-1
  17. CONCOR [Concomitant]
     Active Substance: BISOPROLOL FUMARATE
     Dosage: 2.5MG

REACTIONS (5)
  - Muscular weakness [Fatal]
  - Acute myocardial infarction [Fatal]
  - Cerebrovascular accident [Fatal]
  - Loss of consciousness [Fatal]
  - Speech disorder [Fatal]

NARRATIVE: CASE EVENT DATE: 20140715
